FAERS Safety Report 14227714 (Version 7)
Quarter: 2019Q1

REPORT INFORMATION
  Report Type: Spontaneous
  Country: FR (occurrence: FR)
  Receive Date: 20171127
  Receipt Date: 20190208
  Transmission Date: 20190417
  Serious: Yes (Hospitalization, Other)
  Sender: FDA-Public Use
  Company Number: FR-PFIZER INC-2017502507

PATIENT
  Age: 52 Year
  Sex: Male

DRUGS (25)
  1. ZOLOFT [Suspect]
     Active Substance: SERTRALINE HYDROCHLORIDE
     Indication: BIPOLAR DISORDER
     Dosage: 50 MG, 1X/DAY
     Route: 048
     Dates: end: 20170912
  2. ANCARON [Suspect]
     Active Substance: AMIODARONE HYDROCHLORIDE
     Indication: VENTRICULAR ARRHYTHMIA
     Dosage: UNK, (50 MG/ML)
     Route: 042
     Dates: start: 20170912, end: 20170914
  3. ROCEPHINE [Suspect]
     Active Substance: CEFTRIAXONE SODIUM
     Indication: RESPIRATORY TRACT INFECTION
     Dosage: UNK
     Route: 042
     Dates: start: 20170912, end: 20170913
  4. ZOLOFT [Suspect]
     Active Substance: SERTRALINE HYDROCHLORIDE
     Dosage: 5 MG, DAILY
     Route: 048
     Dates: start: 20171003
  5. TERCIAN [Suspect]
     Active Substance: CYAMEMAZINE
     Dosage: 25 MG, 3X/DAY
     Route: 048
     Dates: start: 20171003
  6. AMIKACIN. [Suspect]
     Active Substance: AMIKACIN
     Indication: RESPIRATORY TRACT INFECTION
     Dosage: UNK
     Route: 042
     Dates: start: 20170925, end: 20170927
  7. PARKINANE LP [Concomitant]
     Active Substance: TRIHEXYPHENIDYL HYDROCHLORIDE
     Indication: PNEUMONIA
     Dosage: 5 MG, 1X/DAY
  8. TIENAM [Concomitant]
     Active Substance: CILASTATIN SODIUM\IMIPENEM
     Indication: PNEUMONIA
     Dosage: UNK
     Dates: start: 20171016
  9. ZYVOXID [Suspect]
     Active Substance: LINEZOLID
     Indication: RESPIRATORY TRACT INFECTION
     Dosage: UNK
     Route: 042
     Dates: start: 20170926, end: 20171002
  10. PIPERACILLIN/TAZOBACTAM [Suspect]
     Active Substance: PIPERACILLIN SODIUM\TAZOBACTAM SODIUM
     Indication: RESPIRATORY TRACT INFECTION
     Dosage: UNK
     Route: 042
     Dates: start: 20170925, end: 20170927
  11. ROVAMYCINE [Suspect]
     Active Substance: SPIRAMYCIN
     Indication: RESPIRATORY TRACT INFECTION
     Dosage: UNK
     Route: 042
     Dates: start: 20170910, end: 20171001
  12. CEFTAZIDIME. [Suspect]
     Active Substance: CEFTAZIDIME
     Indication: RESPIRATORY TRACT INFECTION
     Dosage: UNK
     Route: 042
     Dates: start: 20171019, end: 20171019
  13. TERCIAN [Suspect]
     Active Substance: CYAMEMAZINE
     Indication: BIPOLAR DISORDER
     Dosage: 15 MG, QD
     Route: 048
     Dates: end: 20170912
  14. ROVAMYCINE [Suspect]
     Active Substance: SPIRAMYCIN
     Dosage: UNK
     Route: 065
  15. AUGMENTIN BD [Suspect]
     Active Substance: AMOXICILLIN\CLAVULANIC ACID
     Indication: RESPIRATORY TRACT INFECTION
     Dosage: UNK
     Route: 042
     Dates: start: 20170910, end: 20170911
  16. CORDARONE X [Suspect]
     Active Substance: AMIODARONE HYDROCHLORIDE
     Indication: VENTRICULAR ARRHYTHMIA
     Dosage: UNK
     Route: 065
     Dates: start: 20170912, end: 20170914
  17. ZOLOFT [Suspect]
     Active Substance: SERTRALINE HYDROCHLORIDE
     Dosage: 5 MG, 1X/DAY
     Route: 048
     Dates: end: 20170912
  18. RISPERDAL [Suspect]
     Active Substance: RISPERIDONE
     Indication: BIPOLAR DISORDER
     Dosage: 4 MG, QD
     Route: 048
     Dates: start: 20170902, end: 20170912
  19. RISPERDAL [Suspect]
     Active Substance: RISPERIDONE
     Dosage: 4 MG, DAILY
     Route: 048
  20. TAVANIC [Suspect]
     Active Substance: LEVOFLOXACIN
     Indication: RESPIRATORY TRACT INFECTION
     Dosage: UNK
     Route: 042
     Dates: start: 20170915, end: 20170925
  21. XRP5337 [Suspect]
     Active Substance: SPIRAMYCIN
     Indication: RESPIRATORY TRACT INFECTION
     Dosage: UNK
     Route: 042
     Dates: start: 20170910, end: 20171001
  22. NOCTAMIDE [Concomitant]
     Active Substance: LORMETAZEPAM
     Indication: PNEUMONIA
     Dosage: 2 MG, 1X/DAY
  23. ZOLOFT [Suspect]
     Active Substance: SERTRALINE HYDROCHLORIDE
     Dosage: 50 MG, 1X/DAY
     Route: 048
     Dates: start: 20171003
  24. TERCIAN [Suspect]
     Active Substance: CYAMEMAZINE
     Indication: RESPIRATORY TRACT INFECTION
     Dosage: UNK
     Route: 048
     Dates: start: 20171003
  25. RISPERDAL [Suspect]
     Active Substance: RISPERIDONE
     Indication: RESPIRATORY TRACT INFECTION
     Dosage: UNK
     Route: 061
     Dates: start: 20171002

REACTIONS (18)
  - Pneumonia pseudomonal [Unknown]
  - Vertigo [None]
  - Liver injury [None]
  - Cholestasis [None]
  - Supraventricular tachycardia [Unknown]
  - Diarrhoea [None]
  - Agitation [None]
  - Pulmonary embolism [Unknown]
  - Pneumonia legionella [None]
  - Hyponatraemia [None]
  - Confusional state [None]
  - Staphylococcus test positive [None]
  - Roseolovirus test positive [None]
  - Metabolic acidosis [None]
  - Drug reaction with eosinophilia and systemic symptoms [Recovering/Resolving]
  - Acute respiratory distress syndrome [Unknown]
  - Neuromyopathy [None]
  - Fall [None]

NARRATIVE: CASE EVENT DATE: 20171009
